FAERS Safety Report 4383897-3 (Version None)
Quarter: 2004Q2

REPORT INFORMATION
  Report Type: 
  Country: None (occurrence: None)
  Receive Date: 20040623
  Receipt Date: 20040623
  Transmission Date: 20050107
  Serious: Yes (Hospitalization)
  Sender: FDA-Public Use
  Company Number: None

PATIENT
  Age: 65 Year
  Sex: Male
  Weight: 54 kg

DRUGS (1)
  1. ABELCET [Suspect]
     Dosage: 250 MG Q24H IV
     Route: 042
     Dates: start: 20040429, end: 20040517

REACTIONS (3)
  - BLASTOMYCOSIS [None]
  - HYPOXIA [None]
  - PULMONARY FIBROSIS [None]
